FAERS Safety Report 4287114-4 (Version None)
Quarter: 2004Q1

REPORT INFORMATION
  Report Type: 
  Country: None (occurrence: None)
  Receive Date: 20040205
  Receipt Date: 20040126
  Transmission Date: 20041129
  Serious: Yes (Life-Threatening, Disabling)
  Sender: FDA-Public Use
  Company Number: 2003117207

PATIENT
  Age: 58 Year
  Sex: Female
  Weight: 44 kg

DRUGS (1)
  1. NORVASC [Suspect]
     Indication: HYPERTENSION
     Dosage: 5 MG (DAILY), ORAL
     Route: 048
     Dates: start: 19991210, end: 20030803

REACTIONS (10)
  - EYE INFLAMMATION [None]
  - EYE PAIN [None]
  - FATIGUE [None]
  - PAIN [None]
  - PAIN OF SKIN [None]
  - SKIN DISCOLOURATION [None]
  - SKIN SWELLING [None]
  - SOMNOLENCE [None]
  - TENDON DISORDER [None]
  - WEIGHT DECREASED [None]
